FAERS Safety Report 4891940-8 (Version None)
Quarter: 2006Q1

REPORT INFORMATION
  Report Type: 
  Country: None (occurrence: None)
  Receive Date: 20060124
  Receipt Date: 20060109
  Transmission Date: 20060701
  Serious: Yes (Hospitalization, Other)
  Sender: FDA-Public Use
  Company Number: A-US2005-09299

PATIENT
  Age: 23 Year
  Sex: Female
  Weight: 50.3 kg

DRUGS (8)
  1. TRACLEER [Suspect]
     Indication: PULMONARY HYPERTENSION
     Dosage: SEE IMAGE, ORAL
     Route: 048
     Dates: end: 20041101
  2. TRACLEER [Suspect]
     Indication: PULMONARY HYPERTENSION
     Dosage: SEE IMAGE, ORAL
     Route: 048
     Dates: start: 20041101, end: 20041124
  3. TRACLEER [Suspect]
     Indication: PULMONARY HYPERTENSION
     Dosage: SEE IMAGE, ORAL
     Route: 048
     Dates: start: 20020801
  4. FLOLAN [Concomitant]
  5. PROTONIX [Concomitant]
  6. PRENATAL (THIAMINE, RETINOL, PYRIDOXINE HYDROCHLORIDE, POTASSIUM IODID [Concomitant]
  7. HEPARIN [Concomitant]
  8. BETAMETHASONE [Concomitant]

REACTIONS (9)
  - CAESAREAN SECTION [None]
  - DISEASE PROGRESSION [None]
  - DIZZINESS [None]
  - DRUG EXPOSURE DURING PREGNANCY [None]
  - HEADACHE [None]
  - PREGNANCY [None]
  - PREMATURE LABOUR [None]
  - PULMONARY HYPERTENSION [None]
  - VAGINAL HAEMORRHAGE [None]
